FAERS Safety Report 25142574 (Version 2)
Quarter: 2025Q2

REPORT INFORMATION
  Report Type: Spontaneous
  Country: US (occurrence: US)
  Receive Date: 20250331
  Receipt Date: 20250507
  Transmission Date: 20250716
  Serious: No
  Sender: BOEHRINGER INGELHEIM
  Company Number: US-BoehringerIngelheim-2025-BI-018727

PATIENT
  Age: 81 Year
  Sex: Female

DRUGS (22)
  1. JARDIANCE [Suspect]
     Active Substance: EMPAGLIFLOZIN
     Indication: Product used for unknown indication
  2. PREDNISONE [Concomitant]
     Active Substance: PREDNISONE
     Indication: Product used for unknown indication
  3. CORTIZONE 10 [Concomitant]
     Active Substance: HYDROCORTISONE
     Indication: Product used for unknown indication
  4. ASPIRIN [Concomitant]
     Active Substance: ASPIRIN
     Indication: Product used for unknown indication
  5. METOPROLOL [Concomitant]
     Active Substance: METOPROLOL
     Indication: Product used for unknown indication
  6. PRAVASTATIN [Concomitant]
     Active Substance: PRAVASTATIN
     Indication: Product used for unknown indication
  7. PANTOPRAZOLE SODIUM [Concomitant]
     Active Substance: PANTOPRAZOLE SODIUM
     Indication: Product used for unknown indication
  8. AMLODIPINE [Concomitant]
     Active Substance: AMLODIPINE BESYLATE
     Indication: Product used for unknown indication
  9. MAGNESIUM [Concomitant]
     Active Substance: MAGNESIUM
     Indication: Product used for unknown indication
  10. Lorsartan Potassium [Concomitant]
     Indication: Product used for unknown indication
  11. CALCIUM 500 mg [Concomitant]
     Indication: Product used for unknown indication
  12. POTASSIUM 90 mg [Concomitant]
     Indication: Product used for unknown indication
  13. Vitamin C 500mg [Concomitant]
     Indication: Product used for unknown indication
  14. Zinc 50mg [Concomitant]
     Indication: Product used for unknown indication
  15. Vitamin E 100mg [Concomitant]
     Indication: Product used for unknown indication
  16. Beta Carotin[/ Vitamin A] [Concomitant]
     Indication: Product used for unknown indication
  17. [Beta Carotin/] Vitamin A [Concomitant]
     Indication: Product used for unknown indication
  18. Flax Seed Oil 1000mg [Concomitant]
     Indication: Product used for unknown indication
  19. B12 500mg [Concomitant]
     Indication: Product used for unknown indication
  20. Policosanol 20mg [Concomitant]
     Indication: Product used for unknown indication
  21. Vitamin D3 125mg [Concomitant]
     Indication: Product used for unknown indication
  22. Omega Q Plus Max 100mg [Concomitant]
     Indication: Product used for unknown indication

REACTIONS (1)
  - Asthenia [Unknown]

NARRATIVE: CASE EVENT DATE: 20240601
